FAERS Safety Report 5207615-1 (Version None)
Quarter: 2007Q1

REPORT INFORMATION
  Report Type: 
  Country: None (occurrence: None)
  Receive Date: 20070112
  Receipt Date: 20070102
  Transmission Date: 20070707
  Serious: Yes (Hospitalization, Disabling, Other)
  Sender: FDA-Public Use
  Company Number: US-PFIZER INC-2004117393

PATIENT
  Sex: Male

DRUGS (6)
  1. NEURONTIN [Suspect]
     Indication: DEPRESSION
     Route: 065
     Dates: start: 20010212, end: 20010910
  2. NEURONTIN [Suspect]
     Indication: ANXIETY
  3. NEURONTIN [Suspect]
     Indication: MOOD SWINGS
  4. TRAZODONE HCL [Concomitant]
     Route: 065
  5. REMERON [Concomitant]
     Route: 065
     Dates: start: 20010726, end: 20010910
  6. REVIA [Concomitant]
     Route: 065

REACTIONS (19)
  - AGGRESSION [None]
  - ANXIETY [None]
  - DEPRESSION [None]
  - DISABILITY [None]
  - DRUG INEFFECTIVE [None]
  - DYSPHORIA [None]
  - EYE EXCISION [None]
  - FACIAL BONES FRACTURE [None]
  - GENERAL PHYSICAL HEALTH DETERIORATION [None]
  - HALLUCINATION, AUDITORY [None]
  - HOMICIDAL IDEATION [None]
  - INSOMNIA [None]
  - INTENTIONAL SELF-INJURY [None]
  - IRRITABILITY [None]
  - MIGRAINE [None]
  - OVERDOSE [None]
  - PAIN [None]
  - SUICIDAL IDEATION [None]
  - SUICIDE ATTEMPT [None]
